FAERS Safety Report 14672492 (Version 5)
Quarter: 2021Q1

REPORT INFORMATION
  Report Type: Spontaneous
  Country: US (occurrence: US)
  Receive Date: 20180323
  Receipt Date: 20210304
  Transmission Date: 20210419
  Serious: Yes (Other)
  Sender: FDA-Public Use
  Company Number: US-PFIZER INC-2017469736

PATIENT
  Age: 72 Year
  Sex: Male

DRUGS (3)
  1. XELJANZ [Suspect]
     Active Substance: TOFACITINIB CITRATE
     Indication: RHEUMATOID ARTHRITIS
     Dosage: 5 MG, TWICE DAILY
     Route: 048
     Dates: start: 201610
  2. METFORMIN [Concomitant]
     Active Substance: METFORMIN HYDROCHLORIDE
     Indication: DIABETES MELLITUS
     Dosage: 10 DF, WEEKLY (10 TABLETS ONE DAY PER WEEK BY MOUTH)
     Route: 048
     Dates: start: 2007
  3. ALEVE [Concomitant]
     Active Substance: NAPROXEN SODIUM
     Indication: ANTIINFLAMMATORY THERAPY
     Dosage: 440 MG, 2X/DAY (220MG TABLETS, TAKES 2 IN THE MORNING AND 2 IN THE EVENING)
     Route: 048

REACTIONS (3)
  - Therapeutic response unexpected [Unknown]
  - Fall [Unknown]
  - Upper limb fracture [Not Recovered/Not Resolved]
